FAERS Safety Report 25550346 (Version 2)
Quarter: 2025Q3

REPORT INFORMATION
  Report Type: Spontaneous
  Country: EU (occurrence: EU)
  Receive Date: 20250714
  Receipt Date: 20250717
  Transmission Date: 20251020
  Serious: Yes (Death, Other)
  Sender: PFIZER
  Company Number: EU-DCGMA-25205443

PATIENT
  Age: 69 Year
  Sex: Female
  Weight: 46 kg

DRUGS (4)
  1. ADCETRIS [Suspect]
     Active Substance: BRENTUXIMAB VEDOTIN
     Indication: Hodgkin^s disease
     Route: 042
     Dates: start: 20250521
  2. CYCLOPHOSPHAMIDE [Concomitant]
     Active Substance: CYCLOPHOSPHAMIDE
     Indication: Non-Hodgkin^s lymphoma
     Route: 042
     Dates: start: 20250521
  3. DOXORUBICIN [Concomitant]
     Active Substance: DOXORUBICIN
     Indication: Non-Hodgkin^s lymphoma
     Route: 042
     Dates: start: 20250521
  4. PREDNISOLONE [Concomitant]
     Active Substance: PREDNISOLONE
     Indication: Non-Hodgkin^s lymphoma
     Route: 048
     Dates: start: 20250521, end: 20250525

REACTIONS (6)
  - Ileus paralytic [Fatal]
  - Vomiting [Fatal]
  - Faecal vomiting [Fatal]
  - Aspiration [Fatal]
  - Respiratory failure [Fatal]
  - Constipation [Fatal]

NARRATIVE: CASE EVENT DATE: 20250526
